FAERS Safety Report 11692372 (Version 3)
Quarter: 2016Q3

REPORT INFORMATION
  Report Type: Report from Study
  Country: US (occurrence: US)
  Receive Date: 20151103
  Receipt Date: 20160701
  Transmission Date: 20161109
  Serious: Yes (Hospitalization, Other)
  Sender: FDA-Public Use
  Company Number: US-ASTRAZENECA-2013SE00860

PATIENT
  Age: 91 Year
  Sex: Female
  Weight: 74.8 kg

DRUGS (6)
  1. BLOOD PRESSURE MEDICATION [Concomitant]
     Active Substance: UNSPECIFIED INGREDIENT
     Dosage: PILLS
  2. NEXIUM [Suspect]
     Active Substance: ESOMEPRAZOLE MAGNESIUM
     Indication: GASTROOESOPHAGEAL REFLUX DISEASE
     Dosage: DAILY
     Route: 048
     Dates: end: 201601
  3. LISINOPRIL. [Suspect]
     Active Substance: LISINOPRIL
     Indication: BLOOD PRESSURE MEASUREMENT
     Route: 048
     Dates: end: 201506
  4. WATER PILL [Concomitant]
     Active Substance: UNSPECIFIED INGREDIENT
     Dosage: PILLS
  5. MORPHINE [Concomitant]
     Active Substance: MORPHINE
  6. NEXIUM [Suspect]
     Active Substance: ESOMEPRAZOLE MAGNESIUM
     Route: 048
     Dates: start: 2016

REACTIONS (16)
  - Abdominal pain upper [Unknown]
  - Drug dose omission [Unknown]
  - Bladder disorder [Unknown]
  - Nerve injury [Unknown]
  - Chondropathy [Unknown]
  - Feeling abnormal [Unknown]
  - Fatigue [Unknown]
  - Back pain [Unknown]
  - Cardiac failure congestive [Unknown]
  - Abdominal discomfort [Unknown]
  - Musculoskeletal pain [Unknown]
  - Renal disorder [Unknown]
  - Visual impairment [Unknown]
  - Macular degeneration [Unknown]
  - Kidney infection [Unknown]
  - Pain [Unknown]

NARRATIVE: CASE EVENT DATE: 2015
